FAERS Safety Report 7928584-7 (Version None)
Quarter: 2011Q4

REPORT INFORMATION
  Report Type: 
  Country: None (occurrence: None)
  Receive Date: 20111118
  Receipt Date: 20111114
  Transmission Date: 20120403
  Serious: Yes (Other)
  Sender: FDA-Public Use
  Company Number: US-JNJFOC-20111107566

PATIENT
  Age: 62 Year
  Sex: Female

DRUGS (8)
  1. DOXORUBICIN HCL [Suspect]
     Dosage: DPACE TREATMENT
     Route: 042
  2. CYCLOPHOSPHAMIDE [Suspect]
     Indication: MULTIPLE MYELOMA
     Route: 065
  3. ETOPOSIDE [Suspect]
     Indication: MULTIPLE MYELOMA
     Route: 065
  4. CISPLATIN [Suspect]
     Indication: MULTIPLE MYELOMA
     Route: 065
  5. DOXORUBICIN HCL [Suspect]
     Indication: MULTIPLE MYELOMA
     Dosage: DOXORUBICIN TREATED IN COMBINATION WITH BORTEZOMIB AND DEXAMETHASONE
     Route: 042
  6. BORTEZOMIB [Suspect]
     Indication: MULTIPLE MYELOMA
     Route: 065
  7. DEXAMETHASONE [Suspect]
     Indication: MULTIPLE MYELOMA
     Route: 065
  8. DEXAMETHASONE [Suspect]
     Route: 065

REACTIONS (5)
  - MULTIPLE MYELOMA [None]
  - ATELECTASIS [None]
  - CONFUSIONAL STATE [None]
  - EJECTION FRACTION DECREASED [None]
  - PLEURAL EFFUSION [None]
